FAERS Safety Report 18664933 (Version 2)
Quarter: 2021Q1

REPORT INFORMATION
  Report Type: Report from Study
  Country: US (occurrence: US)
  Receive Date: 20201225
  Receipt Date: 20210319
  Transmission Date: 20210419
  Serious: No
  Sender: FDA-Public Use
  Company Number: US-TAKEDA-2020TUS058397

PATIENT
  Age: 39 Year
  Sex: Male

DRUGS (4)
  1. KALBITOR [Suspect]
     Active Substance: ECALLANTIDE
     Indication: IMMUNE SYSTEM DISORDER
     Dosage: 30 MILLIGRAM, AS NEEDED
     Route: 058
     Dates: start: 2020
  2. LANADELUMAB [Suspect]
     Active Substance: LANADELUMAB
     Indication: IMMUNE SYSTEM DISORDER
  3. LANADELUMAB [Suspect]
     Active Substance: LANADELUMAB
     Indication: HEREDITARY ANGIOEDEMA
     Dosage: 2 MILLILITER, Q2WEEKS
     Route: 058
     Dates: start: 20200920
  4. KALBITOR [Suspect]
     Active Substance: ECALLANTIDE
     Indication: HEREDITARY ANGIOEDEMA
     Route: 065

REACTIONS (4)
  - Mouth swelling [Recovered/Resolved]
  - Dental operation [Unknown]
  - Gastrointestinal disorder [Unknown]
  - Endoscopy [Unknown]

NARRATIVE: CASE EVENT DATE: 20201210
